FAERS Safety Report 7558224-0 (Version None)
Quarter: 2011Q2

REPORT INFORMATION
  Report Type: 
  Country: None (occurrence: None)
  Receive Date: 20110620
  Receipt Date: 20110616
  Transmission Date: 20111010
  Serious: Yes (Hospitalization, Other)
  Sender: FDA-Public Use
  Company Number: DE-ABBOTT-11P-062-0712785-00

PATIENT
  Sex: Female
  Weight: 54 kg

DRUGS (5)
  1. METHOTREXATE [Concomitant]
     Indication: RHEUMATOID ARTHRITIS
     Route: 048
     Dates: start: 20090116
  2. METHOTREXATE [Concomitant]
     Dosage: DOSE CHANGED
     Route: 048
     Dates: start: 20110406
  3. FOLSAN [Concomitant]
     Indication: RHEUMATOID ARTHRITIS
     Route: 048
     Dates: start: 20090216
  4. HUMIRA [Suspect]
     Indication: RHEUMATOID ARTHRITIS
     Route: 058
     Dates: start: 20100615, end: 20110105
  5. ARAVA [Concomitant]
     Indication: RHEUMATOID ARTHRITIS
     Route: 048
     Dates: start: 20090703

REACTIONS (3)
  - NASOPHARYNGITIS [None]
  - LIGAMENT LAXITY [None]
  - JOINT DISLOCATION [None]
